FAERS Safety Report 6892194-3 (Version None)
Quarter: 2010Q3

REPORT INFORMATION
  Report Type: 
  Country: None (occurrence: None)
  Receive Date: 20100731
  Receipt Date: 20080310
  Transmission Date: 20110219
  Serious: Yes (Other)
  Sender: FDA-Public Use
  Company Number: US-PFIZER INC-2008005054

PATIENT
  Sex: Female
  Weight: 87.272 kg

DRUGS (12)
  1. DEPO-MEDROL [Suspect]
     Indication: CHRONIC OBSTRUCTIVE PULMONARY DISEASE
     Route: 042
  2. DARVOCET [Concomitant]
  3. CELEBREX [Concomitant]
  4. CITALOPRAM [Concomitant]
  5. FENOFIBRATE [Concomitant]
  6. FUROSEMIDE [Concomitant]
  7. GABAPENTIN [Concomitant]
  8. DUONEB [Concomitant]
  9. LORAZEPAM [Concomitant]
  10. METFORMIN HCL [Concomitant]
  11. POTASSIUM CHLORIDE [Concomitant]
  12. PREVACID [Concomitant]

REACTIONS (4)
  - BLOOD GLUCOSE INCREASED [None]
  - BLOOD TEST ABNORMAL [None]
  - INCORRECT ROUTE OF DRUG ADMINISTRATION [None]
  - NEUTROPHIL COUNT INCREASED [None]
